FAERS Safety Report 9157650 (Version 5)
Quarter: 2014Q1

REPORT INFORMATION
  Report Type: Report from Study
  Country: DE (occurrence: DE)
  Receive Date: 20130312
  Receipt Date: 20140211
  Transmission Date: 20141002
  Serious: Yes (Disabling, Other)
  Sender: FDA-Public Use
  Company Number: PHHY2013DE022756

PATIENT
  Sex: Male
  Weight: 66 kg

DRUGS (6)
  1. AMN107 [Suspect]
     Indication: CHRONIC MYELOID LEUKAEMIA
     Dosage: 600 MG/DAY
     Route: 048
     Dates: start: 20120211, end: 20130212
  2. AMN107 [Suspect]
     Dosage: 400 MG/DAY
     Route: 048
     Dates: start: 20120321
  3. AMN107 [Suspect]
     Dosage: 400 MG, PER DAY
     Dates: start: 20121018
  4. AMN107 [Suspect]
     Dosage: 400 MG, PER DAY
     Dates: start: 20130528, end: 20131119
  5. AMN107 [Suspect]
     Dosage: 300 MG, PER DAY
     Dates: start: 20131120
  6. XARELTO [Concomitant]
     Dates: start: 20130117

REACTIONS (19)
  - Deep vein thrombosis [Recovered/Resolved]
  - Local swelling [Unknown]
  - Pain in extremity [Unknown]
  - Glaucoma [Unknown]
  - Hypoacusis [Recovered/Resolved]
  - General physical health deterioration [Unknown]
  - Rash [Not Recovered/Not Resolved]
  - Micturition urgency [Recovered/Resolved]
  - Fatigue [Not Recovered/Not Resolved]
  - Weight decreased [Not Recovered/Not Resolved]
  - Ocular hyperaemia [Recovered/Resolved]
  - Depression [Recovered/Resolved]
  - Pruritus [Not Recovered/Not Resolved]
  - Dysphonia [Recovered/Resolved]
  - Musculoskeletal pain [Recovered/Resolved]
  - Conjunctivitis [Recovered/Resolved]
  - Eye pruritus [Unknown]
  - Erythema [Recovered/Resolved]
  - Pollakiuria [Not Recovered/Not Resolved]
